FAERS Safety Report 13511484 (Version 1)
Quarter: 2017Q2

REPORT INFORMATION
  Report Type: Spontaneous
  Country: US (occurrence: US)
  Receive Date: 20170503
  Receipt Date: 20170503
  Transmission Date: 20170830
  Serious: Yes (Hospitalization, Disabling, Other)
  Sender: FDA-Public Use
  Company Number: None

PATIENT
  Age: 64 Year
  Sex: Female

DRUGS (1)
  1. YERVOY [Suspect]
     Active Substance: IPILIMUMAB
     Indication: MALIGNANT MELANOMA
     Route: 042
     Dates: start: 20170223, end: 20170224

REACTIONS (7)
  - Myasthenia gravis [None]
  - Dehydration [None]
  - Pain [None]
  - Asthenia [None]
  - Myositis [None]
  - Eyelid ptosis [None]
  - Diplopia [None]

NARRATIVE: CASE EVENT DATE: 20170223
